FAERS Safety Report 8400089-9 (Version None)
Quarter: 2012Q2

REPORT INFORMATION
  Report Type: 
  Country: None (occurrence: None)
  Receive Date: 20120531
  Receipt Date: 20120521
  Transmission Date: 20120825
  Serious: No
  Sender: FDA-Public Use
  Company Number: US-PFIZER INC-2012123092

PATIENT
  Sex: Female

DRUGS (1)
  1. CHILDREN'S ADVIL [Suspect]
     Dosage: UNK
     Route: 048

REACTIONS (2)
  - POOR QUALITY DRUG ADMINISTERED [None]
  - DYSGEUSIA [None]
